FAERS Safety Report 7366937-9 (Version None)
Quarter: 2011Q1

REPORT INFORMATION
  Report Type: 
  Country: None (occurrence: None)
  Receive Date: 20110322
  Receipt Date: 20110317
  Transmission Date: 20110831
  Serious: Yes (Death)
  Sender: FDA-Public Use
  Company Number: D0070672A

PATIENT
  Age: 45 Year
  Sex: Male

DRUGS (3)
  1. TELZIR [Suspect]
     Route: 065
  2. TRIZIVIR [Suspect]
     Route: 065
  3. KIVEXA [Suspect]
     Route: 065

REACTIONS (1)
  - MYOCARDIAL INFARCTION [None]
